FAERS Safety Report 22192007 (Version 3)
Quarter: 2023Q2

REPORT INFORMATION
  Report Type: Report from Study
  Country: CA (occurrence: CA)
  Receive Date: 20230410
  Receipt Date: 20230508
  Transmission Date: 20230722
  Serious: Yes (Life-Threatening, Hospitalization)
  Sender: FDA-Public Use
  Company Number: CA-HLS-202300764

PATIENT
  Age: 68 Year
  Sex: Male
  Weight: 85 kg

DRUGS (20)
  1. CLOZARIL [Suspect]
     Active Substance: CLOZAPINE
     Indication: Psychotic disorder
     Dosage: 150MG
     Route: 048
     Dates: start: 20070713, end: 20221115
  2. CLOZARIL [Suspect]
     Active Substance: CLOZAPINE
     Indication: Suicidal behaviour
     Dosage: 150MG
     Route: 048
     Dates: start: 20070713, end: 20221115
  3. ASPIRIN [Concomitant]
     Active Substance: ASPIRIN
     Indication: Product used for unknown indication
     Dosage: 81MG TABLET ONCE DAILY
     Route: 065
  4. FERROUS SULFATE [Concomitant]
     Active Substance: FERROUS SULFATE
     Indication: Product used for unknown indication
     Dosage: 300MG TABLET ONCE DAILY
     Route: 065
  5. JANUVIA [Concomitant]
     Active Substance: SITAGLIPTIN PHOSPHATE
     Indication: Product used for unknown indication
     Dosage: 100MG TABLET ONCE DAILY
     Route: 065
  6. PANTOPRAZOLE [Concomitant]
     Active Substance: PANTOPRAZOLE
     Indication: Product used for unknown indication
     Dosage: 40MG TABLET ONCE DAILY
     Route: 065
  7. TAMSULOSIN [Concomitant]
     Active Substance: TAMSULOSIN
     Indication: Product used for unknown indication
     Dosage: 0.4MG CAPSULE ONCE DAILY
     Route: 065
  8. ATORVASTATIN [Concomitant]
     Active Substance: ATORVASTATIN
     Indication: Product used for unknown indication
     Dosage: 10MG TABLET ONCE DAILY
     Route: 065
  9. SYNTHROID [Concomitant]
     Active Substance: LEVOTHYROXINE SODIUM
     Indication: Product used for unknown indication
     Dosage: 0.2MG TABLET WITH 0.025MG TABLET ONCE DAILY FOR A TOTAL DOSE OF 225MCG (ON HOLD)
     Route: 065
  10. NOVOLIN 70/30 [Concomitant]
     Active Substance: INSULIN HUMAN
     Indication: Product used for unknown indication
     Dosage: 30 UNITS TO BE INJECTED SUBCUTANEOUSLY IN THE MORNING AND 55 UNITS AT DINNER.
     Route: 058
  11. METHYLPHENIDATE [Concomitant]
     Active Substance: METHYLPHENIDATE
     Indication: Product used for unknown indication
     Dosage: 20MG TABLET, 3 TABLETS EVERY MORNING
     Route: 065
  12. PARNATE [Concomitant]
     Active Substance: TRANYLCYPROMINE SULFATE
     Indication: Product used for unknown indication
     Dosage: 10MG TABLET, 1 TABLET 3 TIMES DAILY
     Route: 065
  13. ARIPIPRAZOLE [Concomitant]
     Active Substance: ARIPIPRAZOLE
     Indication: Product used for unknown indication
     Dosage: 10MG TABLET ONCE DAILY
     Route: 065
  14. METOPROLOL [Concomitant]
     Active Substance: METOPROLOL
     Indication: Product used for unknown indication
     Dosage: 25MG TABLET ONCE DAILY
     Route: 065
  15. METFORMIN [Concomitant]
     Active Substance: METFORMIN HYDROCHLORIDE
     Indication: Product used for unknown indication
     Dosage: 500MG TABLET, 2 TABLETS TWICE DAILY
     Route: 065
  16. ZYLOPRIM [Concomitant]
     Active Substance: ALLOPURINOL
     Indication: Product used for unknown indication
     Dosage: 200MG TABLET ONCE DAILY
     Route: 065
  17. One Touch Delica lancet needle (30G) [Concomitant]
     Indication: Product used for unknown indication
     Route: 065
  18. alcohol swabs [Concomitant]
     Indication: Product used for unknown indication
     Route: 065
  19. BD ultra fine nano needle (4mm 32G) [Concomitant]
     Indication: Product used for unknown indication
     Route: 065
  20. OneTouch Ultrablue strips [Concomitant]
     Indication: Product used for unknown indication
     Route: 065

REACTIONS (2)
  - Off label use [Unknown]
  - Myocardial infarction [Recovering/Resolving]

NARRATIVE: CASE EVENT DATE: 20221115
